FAERS Safety Report 19775268 (Version 3)
Quarter: 2024Q4

REPORT INFORMATION
  Report Type: Spontaneous
  Country: US (occurrence: US)
  Receive Date: 20210902
  Receipt Date: 20241126
  Transmission Date: 20250115
  Serious: No
  Sender: SANOFI AVENTIS
  Company Number: US-SA-SAC20210406001455

PATIENT
  Age: 8 Year
  Sex: Female

DRUGS (3)
  1. DUPIXENT [Suspect]
     Active Substance: DUPILUMAB
     Indication: Dermatitis atopic
     Dosage: 200 MG, QOW
     Route: 058
     Dates: start: 20210105
  2. DUPIXENT [Suspect]
     Active Substance: DUPILUMAB
     Indication: Eczema nummular
  3. DUPIXENT [Suspect]
     Active Substance: DUPILUMAB
     Indication: Dermatitis

REACTIONS (7)
  - Gastrointestinal disorder [Recovered/Resolved]
  - Illness [Unknown]
  - Scratch [Not Recovered/Not Resolved]
  - Injection site urticaria [Unknown]
  - Injection site erythema [Not Recovered/Not Resolved]
  - Needle issue [Unknown]
  - Product use in unapproved indication [Unknown]

NARRATIVE: CASE EVENT DATE: 20210101
